FAERS Safety Report 6645285-6 (Version None)
Quarter: 2010Q1

REPORT INFORMATION
  Report Type: 
  Country: None (occurrence: None)
  Receive Date: 20100319
  Receipt Date: 20100319
  Transmission Date: 20100710
  Serious: Yes (Life-Threatening)
  Sender: FDA-Public Use
  Company Number: None

PATIENT
  Age: 39 Year
  Sex: Male
  Weight: 85.23 kg

DRUGS (1)
  1. BENZOCAINE TOPICAL SPRAY 20% BEUTLICH [Suspect]
     Indication: LOCAL ANAESTHESIA
     Dosage: OROPHARINGEAL
     Route: 049
     Dates: start: 20100316, end: 20100316

REACTIONS (1)
  - METHAEMOGLOBINAEMIA [None]
